FAERS Safety Report 22523735 (Version 2)
Quarter: 2024Q2

REPORT INFORMATION
  Report Type: Report from Study
  Country: US (occurrence: US)
  Receive Date: 20230606
  Receipt Date: 20240523
  Transmission Date: 20240715
  Serious: Yes (Other)
  Sender: FDA-Public Use
  Company Number: US-ABBVIE-21K-163-3986438-00

PATIENT
  Age: 60 Year
  Sex: Female

DRUGS (5)
  1. RINVOQ [Suspect]
     Active Substance: UPADACITINIB
     Indication: Rheumatoid arthritis
     Route: 048
     Dates: start: 20201003
  2. RINVOQ [Suspect]
     Active Substance: UPADACITINIB
     Indication: Rheumatoid arthritis
     Route: 048
  3. RINVOQ [Suspect]
     Active Substance: UPADACITINIB
     Indication: Rheumatoid arthritis
     Route: 048
  4. PFIZER-BIONTECH COVID-19 VACCINE [Concomitant]
     Active Substance: TOZINAMERAN
     Indication: COVID-19 immunisation
     Dosage: TIME INTERVAL: 1 TOTAL
     Route: 030
     Dates: start: 20210323, end: 20210323
  5. PFIZER-BIONTECH COVID-19 VACCINE [Concomitant]
     Active Substance: TOZINAMERAN
     Indication: COVID-19 immunisation
     Dosage: TIME INTERVAL: 1 TOTAL
     Route: 030
     Dates: start: 20210416, end: 20210416

REACTIONS (10)
  - Cataract [Recovered/Resolved]
  - Fatigue [Not Recovered/Not Resolved]
  - Tooth disorder [Unknown]
  - Sinusitis [Unknown]
  - Weight increased [Unknown]
  - Butterfly rash [Unknown]
  - Exfoliative rash [Unknown]
  - Rash pruritic [Unknown]
  - Rash [Unknown]
  - Scab [Unknown]

NARRATIVE: CASE EVENT DATE: 20201003
